FAERS Safety Report 8219888-1 (Version None)
Quarter: 2012Q1

REPORT INFORMATION
  Report Type: 
  Country: None (occurrence: None)
  Receive Date: 20120319
  Receipt Date: 20120309
  Transmission Date: 20120608
  Serious: Yes (Hospitalization)
  Sender: FDA-Public Use
  Company Number: BR-ASTRAZENECA-2012SE17673

PATIENT
  Age: 71 Year
  Sex: Female
  Weight: 83 kg

DRUGS (8)
  1. NEXIUM [Suspect]
     Route: 048
     Dates: start: 20120306
  2. NEXIUM [Suspect]
     Route: 048
     Dates: start: 20120306
  3. NEXIUM [Suspect]
     Indication: GASTRITIS PROPHYLAXIS
     Route: 048
     Dates: start: 20070101, end: 20120224
  4. METFORMIN HYDROCHLORIDE [Concomitant]
     Indication: DIABETES MELLITUS
  5. DIOVAN [Concomitant]
  6. AMARYL [Concomitant]
     Indication: DIABETES MELLITUS
  7. JANUVIA [Concomitant]
     Indication: DIABETES MELLITUS
  8. SYNTHROID [Concomitant]

REACTIONS (2)
  - PYELONEPHRITIS [None]
  - INAPPROPRIATE SCHEDULE OF DRUG ADMINISTRATION [None]
